FAERS Safety Report 9131026 (Version 5)
Quarter: 2013Q3

REPORT INFORMATION
  Report Type: Report from Study
  Country: JP (occurrence: JP)
  Receive Date: 20130301
  Receipt Date: 20130829
  Transmission Date: 20140515
  Serious: Yes (Hospitalization, Disabling)
  Sender: FDA-Public Use
  Company Number: JP-PFIZER INC-2013069849

PATIENT
  Age: 41 Year
  Sex: Female
  Weight: 59.3 kg

DRUGS (8)
  1. CRIZOTINIB [Suspect]
     Indication: NON-SMALL CELL LUNG CANCER
     Dosage: 250 MG, 2X/DAY
     Route: 048
     Dates: start: 20120619, end: 20120712
  2. DECADRON [Suspect]
     Indication: METASTASES TO CENTRAL NERVOUS SYSTEM
     Dosage: 3 MG, 1X/DAY
     Route: 048
  3. DEPAKENE [Concomitant]
     Dosage: 400 MG, 2X/DAY
     Route: 048
  4. TAKEPRON [Concomitant]
     Dosage: 30 MG, 1X/DAY
     Route: 048
  5. FENTOS TAPE [Concomitant]
     Dosage: 6 MG, 1X/DAY
     Route: 062
     Dates: end: 20120903
  6. LOBU [Concomitant]
     Dosage: 60 MG, 2X/DAY
     Route: 048
     Dates: end: 20120712
  7. REBAMIPIDE [Concomitant]
     Dosage: 100 MG, 3X/DAY
     Route: 048
  8. NOVOLIN R [Concomitant]
     Dosage: 6 IU, 3X/DAY
     Dates: end: 20120902

REACTIONS (4)
  - Arthritis bacterial [Not Recovered/Not Resolved]
  - Oesophageal candidiasis [Recovered/Resolved]
  - Bacteraemia [Recovering/Resolving]
  - Urinary tract infection [Recovered/Resolved]
